FAERS Safety Report 8013886-9 (Version None)
Quarter: 2011Q4

REPORT INFORMATION
  Report Type: 
  Country: None (occurrence: None)
  Receive Date: 20111229
  Receipt Date: 20111227
  Transmission Date: 20120403
  Serious: Yes (Hospitalization)
  Sender: FDA-Public Use
  Company Number: FR-ROCHE-1025767

PATIENT
  Age: 73 Year
  Sex: Female

DRUGS (5)
  1. CALCIUM ACETATE [Concomitant]
     Indication: OSTEOPOROSIS
  2. VITAMIN D [Concomitant]
     Indication: OSTEOPOROSIS
  3. FLUTICASONE PROPIONATE/SALMETEROL [Concomitant]
     Indication: OBSTRUCTIVE AIRWAYS DISORDER
  4. BONIVA [Suspect]
     Indication: OSTEOPOROSIS
     Route: 048
  5. SYMBICORT [Concomitant]
     Indication: OBSTRUCTIVE AIRWAYS DISORDER

REACTIONS (2)
  - BRONCHOSPASM [None]
  - EOSINOPHILIA [None]
